FAERS Safety Report 21386766 (Version 1)
Quarter: 2022Q3

REPORT INFORMATION
  Report Type: Spontaneous
  Country: TR (occurrence: TR)
  Receive Date: 20220928
  Receipt Date: 20220928
  Transmission Date: 20221027
  Serious: Yes (Death, Hospitalization, Other)
  Sender: FDA-Public Use
  Company Number: TR-ALKEM LABORATORIES LIMITED-TR-ALKEM-2022-10752

PATIENT
  Age: 144 Month
  Sex: Female

DRUGS (2)
  1. COLCHICINE [Suspect]
     Active Substance: COLCHICINE
     Indication: Familial mediterranean fever
     Dosage: 0.48 MILLIGRAM/KILOGRAM
     Route: 048
  2. ACETAMINOPHEN [Suspect]
     Active Substance: ACETAMINOPHEN
     Indication: Product used for unknown indication
     Dosage: UNK
     Route: 065

REACTIONS (9)
  - Toxicity to various agents [Fatal]
  - Acute abdomen [Fatal]
  - International normalised ratio increased [Fatal]
  - Vomiting [Fatal]
  - Blood lactic acid increased [Fatal]
  - Hepatic enzyme increased [Fatal]
  - Blood creatinine increased [Fatal]
  - Leukocytosis [Fatal]
  - Poor peripheral circulation [Fatal]
